FAERS Safety Report 9807111 (Version 2)
Quarter: 2014Q1

REPORT INFORMATION
  Report Type: Spontaneous
  Country: CN (occurrence: CN)
  Receive Date: 20140110
  Receipt Date: 20140110
  Transmission Date: 20141002
  Serious: Yes (Life-Threatening, Hospitalization)
  Sender: FDA-Public Use
  Company Number: CN-009507513-1312CHN006836

PATIENT
  Age: 51 Year
  Sex: Male

DRUGS (1)
  1. TEMODAL [Suspect]
     Indication: GLIOMA
     Dosage: UNK
     Route: 048
     Dates: start: 20131114, end: 20131212

REACTIONS (3)
  - Haemorrhage intracranial [Recovered/Resolved]
  - Platelet count decreased [Recovered/Resolved]
  - Transfusion [Recovered/Resolved]
